FAERS Safety Report 4318716-4 (Version None)
Quarter: 2004Q1

REPORT INFORMATION
  Report Type: 
  Country: None (occurrence: None)
  Receive Date: 20040315
  Receipt Date: 20040303
  Transmission Date: 20041129
  Serious: Yes (Death)
  Sender: FDA-Public Use
  Company Number: JP-SHR-04-022009

PATIENT
  Age: 67 Year
  Sex: Male
  Weight: 65 kg

DRUGS (1)
  1. MAGNEVIST [Suspect]
     Indication: NUCLEAR MAGNETIC RESONANCE IMAGING
     Dosage: 13 ML, 1 DOSE
     Dates: start: 20040302, end: 20040302

REACTIONS (1)
  - DEATH [None]
